FAERS Safety Report 9462551 (Version 2)
Quarter: 2013Q3

REPORT INFORMATION
  Report Type: Report from Study
  Country: IL (occurrence: IL)
  Receive Date: 20130816
  Receipt Date: 20130827
  Transmission Date: 20140515
  Serious: Yes (Death)
  Sender: FDA-Public Use
  Company Number: IL-ROCHE-1262468

PATIENT
  Age: 42 Year
  Sex: Female
  Weight: 82 kg

DRUGS (1)
  1. TRASTUZUMAB EMTANSINE [Suspect]
     Indication: BREAST CANCER METASTATIC
     Dosage: PATIENT DID NOT RECEIVE STUDY DRUG 2 MONTHS PRIOR TO HER DEATH
     Route: 065
     Dates: start: 20121028

REACTIONS (1)
  - Disease progression [Fatal]
